FAERS Safety Report 9855018 (Version 1)
Quarter: 2013Q4

REPORT INFORMATION
  Report Type: Spontaneous
  Country: US (occurrence: None)
  Receive Date: 20131226
  Receipt Date: 20131226
  Transmission Date: 20140711
  Serious: Yes (Death)
  Sender: FDA-Public Use
  Company Number: PHEH2013US015561

PATIENT
  Age: 35 Year
  Sex: Female
  Weight: 87.1 kg

DRUGS (9)
  1. AFINITOR (RAD) [Suspect]
     Indication: BREAST CANCER METASTATIC
     Route: 048
     Dates: start: 201305, end: 201306
  2. EXEMESTANE (EXEMESTANE) [Concomitant]
  3. AMBIEN (ZOLPIDEM TARTRATE) [Concomitant]
  4. EFFEXOR (VENLAFAXINE HYDROCHLORIDE) UNKNOWN [Concomitant]
  5. HYDROCODONE (HYDROCODONE) [Concomitant]
  6. ACCUPRIL (QUINAPRIL HYDROCHLORIDE) [Concomitant]
  7. COUMADIN ^BOOTS^ (WARFARIN SODIUM) [Concomitant]
  8. DIGOXIN (DIGOXIN) [Concomitant]
  9. LASIX (FUROSEMIDE) [Concomitant]

REACTIONS (3)
  - Lung infection [None]
  - Breast cancer metastatic [None]
  - Malignant neoplasm progression [None]
